FAERS Safety Report 14288003 (Version 1)
Quarter: 2017Q4

REPORT INFORMATION
  Report Type: Spontaneous
  Country: US (occurrence: US)
  Receive Date: 20171214
  Receipt Date: 20171214
  Transmission Date: 20180321
  Serious: No
  Sender: FDA-Public Use
  Company Number: US-PERRIGO-17US027162

PATIENT
  Age: 72 Year
  Sex: Female
  Weight: 61.22 kg

DRUGS (1)
  1. BACITRACIN. [Suspect]
     Active Substance: BACITRACIN
     Indication: BACTERIAL INFECTION
     Dosage: ONE APPLICATION, TID
     Route: 047
     Dates: start: 20170915, end: 20170915

REACTIONS (5)
  - Eye swelling [Recovered/Resolved]
  - Eye discharge [Recovered/Resolved]
  - Swelling face [Recovered/Resolved]
  - Ocular hyperaemia [Recovered/Resolved]
  - Hypersensitivity [Recovered/Resolved]

NARRATIVE: CASE EVENT DATE: 20170915
